FAERS Safety Report 8586717-6 (Version None)
Quarter: 2012Q3

REPORT INFORMATION
  Report Type: 
  Country: None (occurrence: None)
  Receive Date: 20120810
  Receipt Date: 20120801
  Transmission Date: 20120928
  Serious: Yes (Hospitalization)
  Sender: FDA-Public Use
  Company Number: US-US-EMD SERONO, INC.-7152403

PATIENT
  Sex: Female

DRUGS (2)
  1. CYMBALTA [Concomitant]
     Indication: MULTIPLE SCLEROSIS
  2. REBIF [Suspect]
     Indication: MULTIPLE SCLEROSIS
     Route: 058
     Dates: start: 20100210

REACTIONS (3)
  - INJECTION SITE PAIN [None]
  - ARTHROPOD BITE [None]
  - INJECTION SITE MASS [None]
